FAERS Safety Report 7538094-7 (Version None)
Quarter: 2011Q2

REPORT INFORMATION
  Report Type: 
  Country: None (occurrence: None)
  Receive Date: 20110609
  Receipt Date: 20010515
  Transmission Date: 20111010
  Serious: Yes (Death)
  Sender: FDA-Public Use
  Company Number: PHFR2001GB01543

PATIENT
  Sex: Female

DRUGS (1)
  1. CLOZAPINE [Suspect]
     Dosage: 50 MG, QD
     Route: 048
     Dates: start: 19950427

REACTIONS (2)
  - PARKINSON'S DISEASE [None]
  - ANAEMIA [None]
